FAERS Safety Report 5447396-X (Version None)
Quarter: 2007Q3

REPORT INFORMATION
  Report Type: 
  Country: None (occurrence: None)
  Receive Date: 20070905
  Receipt Date: 20070905
  Transmission Date: 20080115
  Serious: Yes (Hospitalization, Disabling, Other)
  Sender: FDA-Public Use
  Company Number: None

PATIENT
  Age: 69 Year
  Sex: Male
  Weight: 81.6475 kg

DRUGS (2)
  1. PREDNISONE [Suspect]
     Indication: CHRONIC LYMPHOCYTIC LEUKAEMIA
     Dosage: 60 MG  ONCE A DAY  OTHER
     Route: 050
     Dates: start: 20070719, end: 20070902
  2. PREDNISONE [Suspect]
     Indication: THROMBOCYTOPENIA
     Dosage: 60 MG  ONCE A DAY  OTHER
     Route: 050
     Dates: start: 20070719, end: 20070902

REACTIONS (4)
  - BLOOD GLUCOSE INCREASED [None]
  - DEMENTIA [None]
  - DRUG INEFFECTIVE [None]
  - PSYCHOTIC DISORDER [None]
